FAERS Safety Report 8594729-1 (Version None)
Quarter: 2012Q3

REPORT INFORMATION
  Report Type: 
  Country: None (occurrence: None)
  Receive Date: 20120801
  Receipt Date: 20120717
  Transmission Date: 20120928
  Serious: Yes (Other)
  Sender: FDA-Public Use
  Company Number: FK201202084

PATIENT
  Age: 84 Year
  Sex: Male

DRUGS (4)
  1. FLUOROURACIL [Suspect]
     Indication: COLON CANCER METASTATIC
  2. CAPECITABINE [Suspect]
     Indication: COLON CANCER METASTATIC
  3. OXALIPLATIN [Suspect]
     Indication: COLON CANCER METASTATIC
  4. LEUCOVORIN CALCIUM [Suspect]
     Indication: COLON CANCER METASTATIC

REACTIONS (5)
  - BACTERAEMIA [None]
  - GUILLAIN-BARRE SYNDROME [None]
  - DIARRHOEA [None]
  - GENERAL PHYSICAL HEALTH DETERIORATION [None]
  - DYSPHAGIA [None]
